FAERS Safety Report 8524310-1 (Version None)
Quarter: 2012Q3

REPORT INFORMATION
  Report Type: 
  Country: None (occurrence: None)
  Receive Date: 20120720
  Receipt Date: 20120717
  Transmission Date: 20120928
  Serious: Yes (Other)
  Sender: FDA-Public Use
  Company Number: US-PFIZER INC-2012173318

PATIENT
  Sex: Male

DRUGS (2)
  1. RAPAMUNE [Suspect]
     Dosage: 1 MG, TWICE DAILY
     Dates: start: 20010101
  2. PROGRAF [Suspect]
     Dosage: UNK
     Dates: start: 20010101

REACTIONS (3)
  - LYMPHOEDEMA [None]
  - OEDEMA PERIPHERAL [None]
  - ABDOMINAL DISTENSION [None]
